FAERS Safety Report 9704063 (Version 1)
Quarter: 2013Q4

REPORT INFORMATION
  Report Type: Spontaneous
  Country: GB (occurrence: GB)
  Receive Date: 20131122
  Receipt Date: 20131122
  Transmission Date: 20140711
  Serious: Yes (Other)
  Sender: FDA-Public Use
  Company Number: GB-PFIZER INC-2013332476

PATIENT
  Age: 68 Year
  Sex: Female
  Weight: 54 kg

DRUGS (1)
  1. EXEMESTANE [Suspect]
     Indication: ANTIOESTROGEN THERAPY
     Dates: start: 2012, end: 201309

REACTIONS (9)
  - Dementia [Not Recovered/Not Resolved]
  - Memory impairment [Not Recovered/Not Resolved]
  - Emotional disorder [Not Recovered/Not Resolved]
  - Thinking abnormal [Not Recovered/Not Resolved]
  - Tachyphrenia [Not Recovered/Not Resolved]
  - Irritability [Not Recovered/Not Resolved]
  - Abnormal loss of weight [Not Recovered/Not Resolved]
  - Sleep disorder [Not Recovered/Not Resolved]
  - Premenstrual syndrome [Not Recovered/Not Resolved]
